FAERS Safety Report 10246231 (Version 3)
Quarter: 2014Q2

REPORT INFORMATION
  Report Type: Spontaneous
  Country: JP (occurrence: JP)
  Receive Date: 20140619
  Receipt Date: 20140630
  Transmission Date: 20141212
  Serious: Yes (Hospitalization, Other)
  Sender: FDA-Public Use
  Company Number: PHHY2014JP038610

PATIENT
  Sex: Female
  Weight: 57 kg

DRUGS (9)
  1. NEORAL [Suspect]
     Indication: PUSTULAR PSORIASIS
     Dosage: 50 MG, DAILY
     Route: 048
     Dates: start: 20120711, end: 20120911
  2. NEORAL [Suspect]
     Dosage: 25 MG, DAILY
     Route: 048
     Dates: start: 20120912, end: 20130410
  3. HEPARIN [Suspect]
     Indication: ANTICOAGULANT THERAPY
  4. REMICADE [Suspect]
     Dates: start: 20130731
  5. REMICADE [Suspect]
     Dates: start: 20130814
  6. REMICADE [Suspect]
     Dates: start: 20131107
  7. PREDONINE [Suspect]
     Indication: PUSTULAR PSORIASIS
     Dosage: 30 MG/DAY
     Dates: start: 20130709
  8. PREDONINE [Suspect]
     Dosage: 20 MG
     Route: 048
  9. CALONAL [Suspect]

REACTIONS (6)
  - Premature rupture of membranes [Recovered/Resolved]
  - Amniotic cavity infection [Recovered/Resolved]
  - Meconium stain [Unknown]
  - Bacterial infection [Recovered/Resolved]
  - Normal newborn [Unknown]
  - Maternal exposure during pregnancy [Unknown]
